FAERS Safety Report 8097993-0 (Version None)
Quarter: 2012Q1

REPORT INFORMATION
  Report Type: 
  Country: None (occurrence: None)
  Receive Date: 20120128
  Receipt Date: 20110726
  Transmission Date: 20120608
  Serious: No
  Sender: FDA-Public Use
  Company Number: US-ABBOTT-11P-163-0841960-00

PATIENT
  Sex: Female
  Weight: 76.272 kg

DRUGS (12)
  1. HUMIRA [Suspect]
     Indication: RHEUMATOID ARTHRITIS
     Route: 058
     Dates: start: 20110531, end: 20110701
  2. PREDNISONE [Concomitant]
     Indication: RHEUMATOID ARTHRITIS
  3. TOPIRAMATE [Concomitant]
     Indication: PRODUCT USED FOR UNKNOWN INDICATION
  4. FOLIC ACID [Concomitant]
     Indication: VITAMIN SUPPLEMENTATION
  5. PLAQUENIL [Concomitant]
     Indication: RHEUMATOID ARTHRITIS
  6. CALCIUM + VITAMIN D [Concomitant]
     Indication: SUPPLEMENTATION THERAPY
  7. MIRENA [Concomitant]
     Indication: PRODUCT USED FOR UNKNOWN INDICATION
  8. SUMATRIPTAN [Concomitant]
     Indication: PRODUCT USED FOR UNKNOWN INDICATION
  9. METHOTREXATE [Concomitant]
     Indication: RHEUMATOID ARTHRITIS
  10. FOSAMAX [Concomitant]
     Indication: OSTEOPOROSIS
  11. MODIC [Concomitant]
     Indication: RHEUMATOID ARTHRITIS
  12. NEXIUM [Concomitant]
     Indication: GASTROOESOPHAGEAL REFLUX DISEASE

REACTIONS (4)
  - ERYTHEMA [None]
  - DRUG INEFFECTIVE [None]
  - PRURITUS [None]
  - OEDEMA PERIPHERAL [None]
